FAERS Safety Report 17810726 (Version 2)
Quarter: 2020Q2

REPORT INFORMATION
  Report Type: Spontaneous
  Country: JP (occurrence: JP)
  Receive Date: 20200521
  Receipt Date: 20200629
  Transmission Date: 20200714
  Serious: Yes (Hospitalization, Other)
  Sender: FDA-Public Use
  Company Number: JP-AMGEN-JPNSP2020081324

PATIENT

DRUGS (1)
  1. EVENITY [Suspect]
     Active Substance: ROMOSOZUMAB-AQQG
     Indication: OSTEOPOROSIS
     Dosage: 210 MILLIGRAM
     Route: 058
     Dates: start: 202003

REACTIONS (2)
  - Lumbar vertebral fracture [Unknown]
  - Fall [Unknown]

NARRATIVE: CASE EVENT DATE: 2020
